FAERS Safety Report 9115112 (Version 1)
Quarter: 2013Q1

REPORT INFORMATION
  Report Type: Spontaneous
  Country: FR (occurrence: None)
  Receive Date: 20130125
  Receipt Date: 20130125
  Transmission Date: 20140127
  Serious: Yes (Hospitalization)
  Sender: FDA-Public Use
  Company Number: 2013000006

PATIENT
  Age: 78 Year
  Sex: Male

DRUGS (10)
  1. ACEON [Suspect]
     Indication: PRODUCT USED FOR UNKNOWN INDICATION
     Route: 048
     Dates: end: 201211
  2. APROVEL [Suspect]
     Indication: PRODUCT USED FOR UNKNOWN INDICATION
     Route: 048
     Dates: end: 201211
  3. KALEROID (POTASSIUM CHLORIDE) [Suspect]
     Indication: PRODUCT USED FOR UNKNOWN INDICATION
     Route: 048
     Dates: end: 201211
  4. BISOPROLOL (BISOPROLOL) [Concomitant]
  5. LIPANTHYL (FENOFIBRATE) [Concomitant]
  6. STILNOX (ZOLPIDEM TARTRATE) [Concomitant]
  7. TRAMADOL (TRAMADOL) [Concomitant]
  8. LYRICA (PREGABALIN) [Concomitant]
  9. KARDEGIC (ACETYLASLICYLATE LYSINE) [Concomitant]
  10. INEXIUM (ESOMEPRAZOLE MAGNESIUM) [Concomitant]

REACTIONS (4)
  - Cardiac disorder [None]
  - Tremor [None]
  - Malaise [None]
  - Hyperkalaemia [None]
